FAERS Safety Report 4613010-6 (Version None)
Quarter: 2005Q1

REPORT INFORMATION
  Report Type: 
  Country: None (occurrence: None)
  Receive Date: 20050318
  Receipt Date: 20041115
  Transmission Date: 20050727
  Serious: Yes (Other)
  Sender: FDA-Public Use
  Company Number: JP-MERCK-0411USA03221

PATIENT
  Age: 83 Year
  Sex: Female

DRUGS (7)
  1. FOSAMAX [Suspect]
     Indication: OSTEOPOROSIS
     Route: 048
     Dates: start: 20041020, end: 20041103
  2. NORVASC [Concomitant]
     Route: 048
  3. FRANDOL [Concomitant]
     Route: 048
  4. ALTAT [Suspect]
     Route: 048
  5. ASPIRIN [Suspect]
     Route: 048
  6. CIBENOL [Concomitant]
     Route: 048
  7. SIGMART [Concomitant]
     Route: 048

REACTIONS (2)
  - PLATELET COUNT DECREASED [None]
  - PURPURA [None]
